FAERS Safety Report 6261296-7 (Version None)
Quarter: 2009Q3

REPORT INFORMATION
  Report Type: 
  Country: None (occurrence: None)
  Receive Date: 20090709
  Receipt Date: 20090702
  Transmission Date: 20100115
  Serious: Yes (Other)
  Sender: FDA-Public Use
  Company Number: DE-ROCHE-640152

PATIENT
  Age: 14 Year
  Sex: Female

DRUGS (2)
  1. CELLCEPT [Suspect]
     Indication: MIXED CONNECTIVE TISSUE DISEASE
     Route: 065
     Dates: start: 20080901
  2. CELLCEPT [Suspect]
     Route: 065

REACTIONS (1)
  - AUTOIMMUNE THROMBOCYTOPENIA [None]
